FAERS Safety Report 8911683 (Version 1)
Quarter: 2012Q4

REPORT INFORMATION
  Report Type: 
  Country: ES (occurrence: ES)
  Receive Date: 20121115
  Receipt Date: 20121115
  Transmission Date: 20130627
  Serious: Yes (Hospitalization)
  Sender: FDA-Public Use
  Company Number: ES-009507513-1210ESP009907

PATIENT

DRUGS (3)
  1. PEGINTERFERON ALFA-2B [Suspect]
     Indication: HEPATITIS C
     Dosage: 1.5 Microgram per kilogram, UNK
  2. PEGINTERFERON ALFA-2B [Suspect]
     Dosage: 180 Microgram, qw
  3. COPEGUS [Suspect]
     Indication: HEPATITIS C
     Dosage: UNK UNK, qd

REACTIONS (2)
  - Haemolytic anaemia [Unknown]
  - Drug ineffective [Unknown]
